FAERS Safety Report 8980542 (Version 2)
Quarter: 2013Q1

REPORT INFORMATION
  Report Type: Spontaneous
  Country: FR (occurrence: FR)
  Receive Date: 20121221
  Receipt Date: 20130115
  Transmission Date: 20140127
  Serious: Yes (Other)
  Sender: FDA-Public Use
  Company Number: FR-JNJFOC-20121208683

PATIENT
  Sex: Female
  Weight: 90 kg

DRUGS (6)
  1. XARELTO [Suspect]
     Indication: CEREBROVASCULAR ACCIDENT PROPHYLAXIS
     Route: 048
     Dates: start: 20121122, end: 20121128
  2. XARELTO [Suspect]
     Indication: ATRIAL FIBRILLATION
     Route: 048
     Dates: start: 20121122, end: 20121128
  3. BISOPROLOL [Concomitant]
     Indication: BRADYCARDIA
     Route: 065
     Dates: start: 20121122, end: 20121128
  4. BISOPROLOL [Concomitant]
     Indication: BRADYCARDIA
     Route: 065
     Dates: start: 20121211
  5. AMLODIPINE [Concomitant]
     Route: 065
  6. LEVOTHYROX [Concomitant]
     Route: 065

REACTIONS (4)
  - Transaminases increased [Unknown]
  - Asthenia [Recovering/Resolving]
  - Vomiting [Recovering/Resolving]
  - Abdominal pain [Recovering/Resolving]
